FAERS Safety Report 17638305 (Version 1)
Quarter: 2020Q2

REPORT INFORMATION
  Report Type: Spontaneous
  Country: US (occurrence: US)
  Receive Date: 20200407
  Receipt Date: 20200407
  Transmission Date: 20200713
  Serious: No
  Sender: FDA-Public Use
  Company Number: US-ASTRAZENECA-2020SE38774

PATIENT
  Age: 28141 Day
  Sex: Male
  Weight: 72.6 kg

DRUGS (9)
  1. GLIPIZIDE ER [Concomitant]
     Active Substance: GLIPIZIDE
     Route: 048
  2. VITAMIN D [Concomitant]
     Active Substance: VITAMIN D NOS
  3. ALLOPURINAL [Concomitant]
     Active Substance: ALLOPURINOL
     Indication: GOUT
  4. FISH OIL [Concomitant]
     Active Substance: FISH OIL
  5. BYDUREON BCISE [Suspect]
     Active Substance: EXENATIDE
     Indication: TYPE 2 DIABETES MELLITUS
     Route: 058
     Dates: start: 20200312
  6. SYNVASTATIN [Concomitant]
     Indication: BLOOD CHOLESTEROL
  7. LORSARTAN [Concomitant]
     Active Substance: LOSARTAN
  8. METFORMIN [Concomitant]
     Active Substance: METFORMIN HYDROCHLORIDE
  9. TAMSULOSIN [Concomitant]
     Active Substance: TAMSULOSIN

REACTIONS (3)
  - Device leakage [Unknown]
  - Injection site pain [Recovering/Resolving]
  - Body height decreased [Unknown]

NARRATIVE: CASE EVENT DATE: 20200312
